FAERS Safety Report 9302725 (Version 1)
Quarter: 2013Q2

REPORT INFORMATION
  Report Type: Spontaneous
  Country: US (occurrence: None)
  Receive Date: 20130517
  Receipt Date: 20130517
  Transmission Date: 20140414
  Serious: Yes (Disabling, Other)
  Sender: FDA-Public Use
  Company Number: AUR-APL-2013-03976

PATIENT
  Age: 49 Year
  Sex: Female
  Weight: 90.7 kg

DRUGS (3)
  1. VENLAFAXINE (VENLAFAXINE) [Suspect]
     Indication: DEPRESSION
  2. AMLODIPINE [Concomitant]
  3. HYDROCHLOROTHIAZIDE [Concomitant]

REACTIONS (2)
  - Arthropathy [None]
  - Neoplasm malignant [None]
